FAERS Safety Report 8605627-9 (Version None)
Quarter: 2012Q3

REPORT INFORMATION
  Report Type: 
  Country: None (occurrence: None)
  Receive Date: 20120820
  Receipt Date: 20120813
  Transmission Date: 20120928
  Serious: Yes (Other)
  Sender: FDA-Public Use
  Company Number: DE-B.I. PHARMACEUTICALS,INC./RIDGEFIELD-2012-DE-01944DE

PATIENT
  Age: 84 Year
  Sex: Female

DRUGS (2)
  1. PRADAXA [Suspect]
     Dosage: 300 MG
  2. PRADAXA [Suspect]
     Indication: HIP ARTHROPLASTY
     Dosage: 220 MG

REACTIONS (2)
  - INFARCTION [None]
  - STRESS CARDIOMYOPATHY [None]
